FAERS Safety Report 7653551-0 (Version None)
Quarter: 2011Q3

REPORT INFORMATION
  Report Type: 
  Country: None (occurrence: None)
  Receive Date: 20110803
  Receipt Date: 20110726
  Transmission Date: 20111222
  Serious: Yes (Hospitalization)
  Sender: FDA-Public Use
  Company Number: AU-ABBOTT-05P-008-0312128-01

PATIENT
  Sex: Female

DRUGS (5)
  1. FLUVAX [Concomitant]
     Indication: PROPHYLAXIS
     Route: 030
     Dates: start: 20050510, end: 20050510
  2. LERCANIDIPINE [Concomitant]
     Indication: HYPERTENSION
     Route: 048
     Dates: start: 20050515
  3. ENTOCORT EC [Concomitant]
     Indication: NASAL POLYPS
     Route: 045
     Dates: start: 20050329
  4. HUMIRA [Suspect]
     Indication: RHEUMATOID ARTHRITIS
     Route: 058
     Dates: start: 20030603
  5. EOSOMEPRAZOLE MAGNESIUM TRIHYDRATE [Concomitant]
     Indication: DYSPEPSIA
     Route: 048
     Dates: start: 20041001

REACTIONS (1)
  - HAIR FOLLICLE TUMOUR BENIGN [None]
